FAERS Safety Report 13536446 (Version 1)
Quarter: 2017Q2

REPORT INFORMATION
  Report Type: Spontaneous
  Country: US (occurrence: US)
  Receive Date: 20170511
  Receipt Date: 20170511
  Transmission Date: 20170830
  Serious: Yes (Other)
  Sender: FDA-Public Use
  Company Number: US-NOVOPROD-543879

PATIENT
  Age: 15 Month
  Sex: Male
  Weight: 19 kg

DRUGS (2)
  1. NORDITROPIN [Suspect]
     Active Substance: SOMATROPIN
     Indication: GROWTH HORMONE DEFICIENCY
     Dosage: UNK
     Route: 058
     Dates: start: 201504, end: 201604
  2. NORDITROPIN [Suspect]
     Active Substance: SOMATROPIN
     Indication: PRADER-WILLI SYNDROME

REACTIONS (2)
  - Weight increased [Unknown]
  - Febrile convulsion [Recovered/Resolved]

NARRATIVE: CASE EVENT DATE: 2015
